FAERS Safety Report 5901063-4 (Version None)
Quarter: 2008Q3

REPORT INFORMATION
  Report Type: 
  Country: None (occurrence: None)
  Receive Date: 20080929
  Receipt Date: 20080916
  Transmission Date: 20090109
  Serious: Yes (Other)
  Sender: FDA-Public Use
  Company Number: US-ROCHE-578387

PATIENT
  Age: 18 Year
  Sex: Female

DRUGS (2)
  1. PEGASYS [Suspect]
     Indication: HEPATITIS C
     Dosage: PUT ON HOLD ON 14 JULY 2008 AND TO BE RESUMED IN 2 MONTHS
     Route: 065
     Dates: end: 20080714
  2. RIBAVIRIN [Suspect]
     Indication: HEPATITIS C
     Dosage: PUT ON HOLD ON 14 JULY 2008 AND TO BE RESUMED IN 2 MONTHS
     Route: 065
     Dates: end: 20080714

REACTIONS (5)
  - ALCOHOLIC SEIZURE [None]
  - HAEMATEMESIS [None]
  - MOUTH ULCERATION [None]
  - NAUSEA [None]
  - VOMITING [None]
